FAERS Safety Report 6410753-9 (Version None)
Quarter: 2009Q4

REPORT INFORMATION
  Report Type: 
  Country: None (occurrence: None)
  Receive Date: 20091022
  Receipt Date: 20091014
  Transmission Date: 20100525
  Serious: Yes (Life-Threatening, Other)
  Sender: FDA-Public Use
  Company Number: JP-ABBOTT-09P-087-0602765-00

PATIENT
  Sex: Male
  Weight: 60 kg

DRUGS (6)
  1. SEVOFLURANE [Suspect]
     Indication: GENERAL ANAESTHESIA
     Dosage: 1.5-3.0  PERCENT
     Route: 055
     Dates: start: 20090501, end: 20090501
  2. PROPOFOL [Suspect]
     Indication: INDUCTION OF ANAESTHESIA
     Route: 042
     Dates: start: 20090501, end: 20090501
  3. FENTANYL-100 [Suspect]
     Indication: PERIOPERATIVE ANALGESIA
     Route: 042
     Dates: start: 20090501, end: 20090501
  4. MARCAINE [Suspect]
     Indication: SPINAL ANAESTHESIA
     Route: 024
     Dates: start: 20090501, end: 20090501
  5. SERENACE [Suspect]
     Indication: INDUCTION OF ANAESTHESIA
     Route: 042
     Dates: start: 20090501, end: 20090501
  6. FRANDOL [Concomitant]
     Indication: DRUG USE FOR UNKNOWN INDICATION
     Route: 062
     Dates: start: 20090501, end: 20090502

REACTIONS (2)
  - TONIC CONVULSION [None]
  - VENTRICULAR TACHYCARDIA [None]
